FAERS Safety Report 25026602 (Version 1)
Quarter: 2025Q1

REPORT INFORMATION
  Report Type: Spontaneous
  Country: RU (occurrence: RU)
  Receive Date: 20250301
  Receipt Date: 20250301
  Transmission Date: 20250409
  Serious: Yes (Other)
  Sender: IPSEN BIOPHARMACEUTICALS, INC.
  Company Number: RU-IPSEN Group, Research and Development-2025-04624

PATIENT
  Age: 63 Year
  Sex: Female
  Weight: 80 kg

DRUGS (1)
  1. LANREOTIDE ACETATE [Suspect]
     Active Substance: LANREOTIDE ACETATE
     Indication: Small intestine neuroendocrine tumour
     Route: 058
     Dates: start: 201912

REACTIONS (2)
  - Hepatotoxicity [Unknown]
  - Serum serotonin increased [Unknown]

NARRATIVE: CASE EVENT DATE: 20200601
